FAERS Safety Report 8245264-1 (Version None)
Quarter: 2012Q1

REPORT INFORMATION
  Report Type: 
  Country: None (occurrence: None)
  Receive Date: 20120329
  Receipt Date: 20120312
  Transmission Date: 20120608
  Serious: Yes (Hospitalization, Congenital Anomaly)
  Sender: FDA-Public Use
  Company Number: US-ROCHE-1053122

PATIENT
  Age: 12 Month

DRUGS (5)
  1. ATROVENT [Concomitant]
     Indication: BRONCHITIS
  2. OMALIZUMAB [Suspect]
     Indication: PRODUCT USED FOR UNKNOWN INDICATION
     Dosage: DATE OF LAST DATE PRIOR TO SAE: 03/NOV/2011, LAST DOSE: 375 MG
     Dates: start: 20060324
  3. MIRALAX [Concomitant]
     Indication: CONSTIPATION
     Route: 048
  4. XOPENEX [Concomitant]
     Indication: BRONCHITIS
  5. PREVACID [Concomitant]
     Route: 048

REACTIONS (1)
  - LARYNGEAL CLEFT [None]
